FAERS Safety Report 8132454-1 (Version None)
Quarter: 2012Q1

REPORT INFORMATION
  Report Type: 
  Country: None (occurrence: None)
  Receive Date: 20120103
  Receipt Date: 20111116
  Transmission Date: 20120608
  Serious: No
  Sender: FDA-Public Use
  Company Number: AE-2011-001624

PATIENT
  Age: 59 Year
  Sex: Female

DRUGS (16)
  1. NAPROSYN [Concomitant]
  2. LEXAPRO [Concomitant]
  3. LISINOPRIL [Concomitant]
  4. PEGASYS [Concomitant]
  5. ENTERIC ASPIRIN (ACETYLSALICYLIC ACID) [Concomitant]
  6. RANITIDINE HYDROCHLORIDE [Concomitant]
  7. MILK THISTLE (SILYBUM MARIANUM) [Concomitant]
  8. INCIVEK [Suspect]
     Dosage: 2250 MG (750 MG,3 IN 1 D),ORAL
     Route: 048
     Dates: start: 20110915
  9. TIZANIDINE HCL [Concomitant]
  10. ONE A DAY VITAMIN (ONE-A-DAY) [Concomitant]
  11. FISH OIL (FISH OIL) [Concomitant]
  12. PROMETHAZINE [Concomitant]
  13. HYDROXYZINE [Concomitant]
  14. RIBAVIRIN [Concomitant]
  15. LEVOTHYROXINE SODIUM [Concomitant]
  16. OMEPRAZOLE [Concomitant]

REACTIONS (1)
  - HEADACHE [None]
